FAERS Safety Report 4281822-7 (Version None)
Quarter: 2004Q1

REPORT INFORMATION
  Report Type: 
  Country: None (occurrence: None)
  Receive Date: 20040129
  Receipt Date: 20040129
  Transmission Date: 20041129
  Serious: No
  Sender: FDA-Public Use
  Company Number: None

PATIENT
  Age: 54 Year
  Sex: Male
  Weight: 81.6475 kg

DRUGS (4)
  1. LOTENSIN [Suspect]
     Indication: DIABETES MELLITUS
     Dosage: 20 MG QD ORAL
     Route: 048
  2. LOTENSIN [Suspect]
     Indication: HYPERTENSION
     Dosage: 20 MG QD ORAL
     Route: 048
  3. ALEVE [Suspect]
     Indication: ARTHRITIS
     Dosage: 220 MG BID ORAL
     Route: 048
     Dates: start: 20031201, end: 20031206
  4. AMLODIPINE BESYLATE [Concomitant]

REACTIONS (6)
  - ARTHRALGIA [None]
  - CONDITION AGGRAVATED [None]
  - DRUG INEFFECTIVE [None]
  - FATIGUE [None]
  - HEADACHE [None]
  - HYPERTENSION [None]
